FAERS Safety Report 5657769-8 (Version None)
Quarter: 2008Q1

REPORT INFORMATION
  Report Type: 
  Country: None (occurrence: None)
  Receive Date: 20080310
  Receipt Date: 20070202
  Transmission Date: 20080703
  Serious: No
  Sender: FDA-Public Use
  Company Number: US-ASTRAZENECA-2007UW02282

PATIENT
  Age: 52 Year
  Sex: Male
  Weight: 117.9 kg

DRUGS (2)
  1. ZESTRIL [Suspect]
     Indication: HYPERTENSION
     Route: 048
  2. NEXIUM [Concomitant]

REACTIONS (1)
  - BLOOD PRESSURE ABNORMAL [None]
